FAERS Safety Report 5057890-1 (Version None)
Quarter: 2006Q2

REPORT INFORMATION
  Report Type: 
  Country: None (occurrence: None)
  Receive Date: 20060627
  Receipt Date: 20060327
  Transmission Date: 20061013
  Serious: No
  Sender: FDA-Public Use
  Company Number: SP00784

PATIENT
  Age: 53 Year
  Sex: Female
  Weight: 68.9467 kg

DRUGS (2)
  1. XIFAXAN [Suspect]
     Indication: ACCIDENTAL OVERDOSE
     Dosage: 21TABLETS/ONCE,-ORAL
     Route: 048
     Dates: start: 20060220, end: 20060220
  2. XIFAXAN [Suspect]
     Indication: PRESCRIBED OVERDOSE
     Dosage: 21TABLETS/ONCE,-ORAL
     Route: 048
     Dates: start: 20060220, end: 20060220

REACTIONS (2)
  - ACCIDENTAL OVERDOSE [None]
  - NAUSEA [None]
